FAERS Safety Report 13834588 (Version 1)
Quarter: 2017Q3

REPORT INFORMATION
  Report Type: Spontaneous
  Country: US (occurrence: US)
  Receive Date: 20170804
  Receipt Date: 20170804
  Transmission Date: 20171127
  Serious: No
  Sender: FDA-Public Use
  Company Number: US-PRINSTON PHARMACEUTICAL INC.-2017PRN00368

PATIENT
  Sex: Male

DRUGS (1)
  1. CLONAZEPAM. [Suspect]
     Active Substance: CLONAZEPAM
     Indication: TREMOR
     Dosage: 2 MG, 2X/DAY

REACTIONS (5)
  - Gait disturbance [Unknown]
  - Blood alcohol increased [Unknown]
  - Memory impairment [Unknown]
  - Alcohol interaction [Unknown]
  - Somnolence [Unknown]
